FAERS Safety Report 5690070-5 (Version None)
Quarter: 2008Q2

REPORT INFORMATION
  Report Type: 
  Country: None (occurrence: None)
  Receive Date: 20080401
  Receipt Date: 20080319
  Transmission Date: 20081010
  Serious: Yes (Other)
  Sender: FDA-Public Use
  Company Number: PHBS2008CA03588

PATIENT
  Age: 60 Year
  Sex: Male

DRUGS (6)
  1. PAMIDRONATE DISODIUM [Suspect]
     Indication: SKIN LESION
  2. PREDNISONE TAB [Concomitant]
  3. CYCLOPHOSPHAMIDE [Concomitant]
  4. DECADRON [Concomitant]
     Indication: DISEASE PROGRESSION
     Dosage: 40 MG /DAY EVERY TWO WEEKS
  5. THALIDOMIDE [Concomitant]
     Indication: DISEASE PROGRESSION
     Dosage: 200 MG, UNK
  6. MELPHAN [Concomitant]

REACTIONS (11)
  - BONE DEBRIDEMENT [None]
  - DISEASE PROGRESSION [None]
  - DRUG RESISTANCE [None]
  - HYPERGLYCAEMIA [None]
  - JAW OPERATION [None]
  - MUSCLE FLAP OPERATION [None]
  - OSTEONECROSIS [None]
  - PAIN [None]
  - POOR PERSONAL HYGIENE [None]
  - TOOTH EXTRACTION [None]
  - ULCER [None]
